FAERS Safety Report 8927320 (Version 3)
Quarter: 2012Q4

REPORT INFORMATION
  Report Type: 
  Country: IT (occurrence: IT)
  Receive Date: 20121127
  Receipt Date: 20121207
  Transmission Date: 20130627
  Serious: Yes (Hospitalization)
  Sender: FDA-Public Use
  Company Number: PHHY2012IT106386

PATIENT
  Age: 83 Year
  Sex: Female

DRUGS (5)
  1. TEGRETOL [Suspect]
     Indication: TRIGEMINAL NEURALGIA
     Dosage: 800 mg, daily
     Route: 048
     Dates: start: 20120701, end: 20120814
  2. TEGRETOL [Suspect]
     Dosage: UNK UKN, UNK
  3. MICARDIS PLUS [Concomitant]
     Dosage: 1 DF, UNK
     Route: 048
  4. SONGAR [Concomitant]
     Dosage: 1 DF, UNK
     Route: 048
  5. PARIET [Concomitant]
     Dosage: 1 DF, UNK
     Route: 048

REACTIONS (5)
  - Fall [Recovering/Resolving]
  - Vomiting [Recovering/Resolving]
  - Overdose [Recovering/Resolving]
  - Drug level increased [Unknown]
  - Drug ineffective [Unknown]
